FAERS Safety Report 20538459 (Version 1)
Quarter: 2022Q1

REPORT INFORMATION
  Report Type: Spontaneous
  Country: HR (occurrence: HR)
  Receive Date: 20220302
  Receipt Date: 20220302
  Transmission Date: 20220423
  Serious: Yes (Hospitalization)
  Sender: FDA-Public Use
  Company Number: None

PATIENT
  Age: 40 Year
  Sex: Male

DRUGS (9)
  1. REMICADE [Suspect]
     Active Substance: INFLIXIMAB
     Indication: Rheumatoid arthritis
     Dosage: 100 MG; 600 MG?ADDITIONAL INFO: SOLUMEDROL 80 MG+ SYNOPEN1 AMP U 100 ML FO;NIXAR 2X1 TBL DNEVNO + DE
     Route: 042
     Dates: start: 20210413, end: 20210413
  2. REMICADE [Suspect]
     Active Substance: INFLIXIMAB
     Indication: Juvenile idiopathic arthritis
     Dosage: ADDITIONAL INFO: SOLUMEDROL 80 MG+ SYNOPEN1 AMP U 100 ML FO;NIXAR 2X1 TBL DNEVNO + DECORTIN10 MG .
     Route: 042
  3. ROSUVASTATIN CALCIUM [Concomitant]
     Active Substance: ROSUVASTATIN CALCIUM
     Indication: Hyperlipidaemia
     Dosage: 10 MG; 10 MG
     Route: 048
  4. CO DALNEVA [Concomitant]
     Indication: Hypertension
     Dosage: 8/2,5/10 MG; 8/2,5/10 MG 1X DNEVNO1 DF = 8 MG PERINDOPRILUM + 2,5 MG INDAPAMIDUM + 10 MG AMLODIPINUM
     Route: 048
  5. DICLOFENAC SODIUM [Concomitant]
     Active Substance: DICLOFENAC SODIUM
     Indication: Rheumatoid arthritis
     Dosage: 75 MG; 75 MG DO 2X DNEVNO
     Route: 048
  6. TRICOR [Concomitant]
     Active Substance: FENOFIBRATE
     Indication: Hyperlipidaemia
     Dosage: 160 MG
     Route: 048
  7. CONTROLOC [PANTOPRAZOLE SODIUM SESQUIHYDRATE] [Concomitant]
     Indication: Gastritis
     Dosage: 20 MG; 20 MG
     Route: 048
  8. PREDNISONE [Concomitant]
     Active Substance: PREDNISONE
     Indication: Juvenile idiopathic arthritis
     Route: 048
  9. PREDNISONE [Concomitant]
     Active Substance: PREDNISONE
     Indication: Rheumatoid arthritis
     Route: 065

REACTIONS (10)
  - C-reactive protein increased [Recovered/Resolved]
  - Blood lactic acid increased [Recovered/Resolved]
  - Pruritus [Recovered/Resolved]
  - Hypotension [Recovered/Resolved]
  - Chills [Recovered/Resolved]
  - Erythema [Recovered/Resolved]
  - Pyrexia [Recovered/Resolved]
  - Rash erythematous [Recovered/Resolved]
  - Chills [Recovered/Resolved]
  - Application site erythema [Recovered/Resolved]

NARRATIVE: CASE EVENT DATE: 20210414
